FAERS Safety Report 6065446-7 (Version None)
Quarter: 2009Q1

REPORT INFORMATION
  Report Type: 
  Country: None (occurrence: None)
  Receive Date: 20090204
  Receipt Date: 20090123
  Transmission Date: 20090719
  Serious: Yes (Other)
  Sender: FDA-Public Use
  Company Number: AU-PFIZER INC-2009163543

PATIENT

DRUGS (3)
  1. ZOLOFT [Suspect]
     Indication: DEPRESSION
     Dates: start: 20080801
  2. CRESTOR [Concomitant]
     Dosage: 10 MG, UNK
  3. COVERSYL [Concomitant]
     Dosage: UNK

REACTIONS (8)
  - C-REACTIVE PROTEIN INCREASED [None]
  - FATIGUE [None]
  - INSOMNIA [None]
  - OEDEMA PERIPHERAL [None]
  - PAIN IN EXTREMITY [None]
  - RHEUMATOID ARTHRITIS [None]
  - URINARY RETENTION [None]
  - WEIGHT DECREASED [None]
